FAERS Safety Report 21556480 (Version 1)
Quarter: 2022Q4

REPORT INFORMATION
  Report Type: Spontaneous
  Country: US (occurrence: None)
  Receive Date: 20221104
  Receipt Date: 20221104
  Transmission Date: 20230113
  Serious: Yes (Disabling, Other)
  Sender: FDA-Public Use
  Company Number: None

PATIENT
  Age: 44 Year
  Sex: Male
  Weight: 63 kg

DRUGS (1)
  1. METHYLPREDNISOLONE [Suspect]
     Active Substance: METHYLPREDNISOLONE
     Indication: Infection
     Route: 048

REACTIONS (5)
  - Swelling [None]
  - Arthralgia [None]
  - Joint noise [None]
  - Tendon pain [None]
  - Product complaint [None]

NARRATIVE: CASE EVENT DATE: 20211125
